FAERS Safety Report 23603635 (Version 1)
Quarter: 2024Q1

REPORT INFORMATION
  Report Type: Spontaneous
  Country: FR (occurrence: FR)
  Receive Date: 20240307
  Receipt Date: 20240307
  Transmission Date: 20240410
  Serious: Yes (Other)
  Sender: FDA-Public Use
  Company Number: None

PATIENT
  Age: 41 Year
  Sex: Male
  Weight: 71 kg

DRUGS (1)
  1. VONICOG ALFA [Suspect]
     Active Substance: VONICOG ALFA
     Indication: Haemorrhage prophylaxis
     Dosage: 2600 INTERNATIONAL UNIT
     Route: 042
     Dates: start: 20240212, end: 20240212

REACTIONS (1)
  - Syncope [Recovered/Resolved]

NARRATIVE: CASE EVENT DATE: 20240212
